FAERS Safety Report 6695887-6 (Version None)
Quarter: 2010Q2

REPORT INFORMATION
  Report Type: 
  Country: None (occurrence: None)
  Receive Date: 20100426
  Receipt Date: 20090424
  Transmission Date: 20101027
  Serious: No
  Sender: FDA-Public Use
  Company Number: A0771343A

PATIENT
  Age: 62 Year
  Sex: Female

DRUGS (4)
  1. ZOFRAN [Suspect]
     Indication: NAUSEA
     Dosage: 4MG UNKNOWN
     Route: 048
     Dates: start: 20090301
  2. OGEN [Concomitant]
  3. ENBREL [Concomitant]
  4. DILAUDID [Concomitant]
     Indication: SCIATICA
     Dosage: 2MG SINGLE DOSE
     Route: 065
     Dates: start: 20090301, end: 20090301

REACTIONS (4)
  - DRUG INEFFECTIVE [None]
  - HEADACHE [None]
  - NAUSEA [None]
  - PRODUCT QUALITY ISSUE [None]
